FAERS Safety Report 25713728 (Version 2)
Quarter: 2025Q3

REPORT INFORMATION
  Report Type: Spontaneous
  Country: EU (occurrence: EU)
  Receive Date: 20250822
  Receipt Date: 20250829
  Transmission Date: 20251020
  Serious: Yes (Life-Threatening, Hospitalization, Other)
  Sender: CELLTRION
  Company Number: EU-ABBVIE-6352988

PATIENT

DRUGS (5)
  1. ADALIMUMAB [Suspect]
     Active Substance: ADALIMUMAB
     Indication: Sacroiliitis
     Route: 058
  2. ADALIMUMAB [Suspect]
     Active Substance: ADALIMUMAB
     Indication: Axial spondyloarthritis
     Route: 065
  3. ADALIMUMAB [Suspect]
     Active Substance: ADALIMUMAB
     Indication: Peripheral spondyloarthritis
     Route: 065
  4. GOLIMUMAB [Suspect]
     Active Substance: GOLIMUMAB
     Indication: Axial spondyloarthritis
  5. GOLIMUMAB [Suspect]
     Active Substance: GOLIMUMAB
     Indication: Peripheral spondyloarthritis
     Route: 065

REACTIONS (4)
  - Antisynthetase syndrome [Recovering/Resolving]
  - Uveitis [Recovered/Resolved]
  - Uveitis [Unknown]
  - Intentional product use issue [Unknown]
